FAERS Safety Report 20942537 (Version 7)
Quarter: 2023Q2

REPORT INFORMATION
  Report Type: Report from Study
  Country: CL (occurrence: None)
  Receive Date: 20220610
  Receipt Date: 20230410
  Transmission Date: 20230721
  Serious: Yes (Hospitalization)
  Sender: FDA-Public Use
  Company Number: CL-ROCHE-3113120

PATIENT
  Age: 70 Year
  Sex: Male
  Weight: 85 kg

DRUGS (13)
  1. ATEZOLIZUMAB [Suspect]
     Active Substance: ATEZOLIZUMAB
     Indication: Hormone-refractory prostate cancer
     Dosage: DATE OF THE MOST RECENT DOSE OF ATEZOLIZUMAB PRIOR TO THE EVENT WAS 13/MAY/2022
     Route: 041
     Dates: start: 20220513
  2. CABOZANTINIB [Suspect]
     Active Substance: CABOZANTINIB
     Indication: Hormone-refractory prostate cancer
     Dosage: ON 23/MAY/2022, THE PATIENT RECEIVED THE MOST RECENT DOSE OF CABOZANTINIB PRIOR TO THE EVENT.
     Route: 048
     Dates: start: 20220513, end: 20220523
  3. ATORVASTATIN [Concomitant]
     Active Substance: ATORVASTATIN
  4. TAPENTADOL [Concomitant]
     Active Substance: TAPENTADOL
     Dates: start: 20220326
  5. VALSARTAN [Concomitant]
     Active Substance: VALSARTAN
     Dates: start: 20220201, end: 20220601
  6. BISOPROLOL [Concomitant]
     Active Substance: BISOPROLOL
  7. ACETAMINOPHEN [Concomitant]
     Active Substance: ACETAMINOPHEN
     Dates: start: 20220326, end: 20220524
  8. METFORMIN [Concomitant]
     Active Substance: METFORMIN HYDROCHLORIDE
  9. TRAMADOL [Concomitant]
     Active Substance: TRAMADOL
     Dates: start: 20220326
  10. DOCETAXEL [Concomitant]
     Active Substance: DOCETAXEL
  11. AMPICILLIN SODIUM\SULBACTAM SODIUM [Concomitant]
     Active Substance: AMPICILLIN SODIUM\SULBACTAM SODIUM
  12. LEUPROLIDE [Concomitant]
     Active Substance: LEUPROLIDE
     Dates: start: 20180101
  13. ZOMETA [Concomitant]
     Active Substance: ZOLEDRONIC ACID
     Dates: start: 20210701

REACTIONS (1)
  - Tumour hyperprogression [Recovered/Resolved]

NARRATIVE: CASE EVENT DATE: 20220524
